FAERS Safety Report 5389573-2 (Version None)
Quarter: 2007Q3

REPORT INFORMATION
  Report Type: 
  Country: None (occurrence: None)
  Receive Date: 20070717
  Receipt Date: 20070713
  Transmission Date: 20080115
  Serious: Yes (Life-Threatening)
  Sender: FDA-Public Use
  Company Number: EE-GENENTECH-244279

PATIENT
  Age: 66 Year
  Sex: Female

DRUGS (4)
  1. ACTIVASE [Suspect]
     Indication: CEREBROVASCULAR ACCIDENT
     Dosage: 90 MG
     Route: 042
     Dates: start: 20070618, end: 20070618
  2. PROPOFOL [Concomitant]
     Indication: SEDATION
     Route: 042
     Dates: start: 20070618, end: 20070619
  3. METOPROLOL SUCCINATE [Concomitant]
     Indication: ARRHYTHMIA
     Route: 042
     Dates: start: 20070618, end: 20070618
  4. TRANDATE [Concomitant]
     Indication: HYPERTENSION
     Route: 042
     Dates: start: 20070618, end: 20070619

REACTIONS (1)
  - DERMATITIS BULLOUS [None]
